FAERS Safety Report 19940199 (Version 1)
Quarter: 2021Q4

REPORT INFORMATION
  Report Type: Report from Study
  Country: None (occurrence: US)
  Receive Date: 20211012
  Receipt Date: 20211012
  Transmission Date: 20220303
  Serious: Yes (Hospitalization)
  Sender: FDA-Public Use
  Company Number: US-ABBVIE-21K-163-4114677-00

PATIENT
  Age: 57 Year
  Sex: Female

DRUGS (2)
  1. RINVOQ [Suspect]
     Active Substance: UPADACITINIB
     Indication: Rheumatoid arthritis
     Route: 048
     Dates: start: 202103
  2. HUMIRA [Suspect]
     Active Substance: ADALIMUMAB
     Indication: Rheumatoid arthritis
     Route: 058

REACTIONS (9)
  - Depression [Unknown]
  - Photosensitivity reaction [Unknown]
  - Weight decreased [Unknown]
  - Joint stiffness [Unknown]
  - Pain in extremity [Unknown]
  - Fatigue [Unknown]
  - Drug ineffective [Unknown]
  - Fungal skin infection [Unknown]
  - Pain [Unknown]

NARRATIVE: CASE EVENT DATE: 20210101
